FAERS Safety Report 4783400-X (Version None)
Quarter: 2005Q3

REPORT INFORMATION
  Report Type: 
  Country: None (occurrence: None)
  Receive Date: 20050929
  Receipt Date: 20050919
  Transmission Date: 20060218
  Serious: Yes (Hospitalization)
  Sender: FDA-Public Use
  Company Number: PHEH2005US10452

PATIENT
  Age: 53 Year
  Sex: Female

DRUGS (7)
  1. KEPPRA [Concomitant]
     Dosage: 250 MG, UNK
  2. METFORMIN [Concomitant]
     Dosage: 1000 MG, UNK
  3. ATENOLOL [Concomitant]
     Dosage: 50 MG, UNK
  4. LIPITOR                                 /NET/ [Concomitant]
     Dosage: 20 MG, UNK
  5. EYE DROPS [Concomitant]
  6. LOTREL [Suspect]
     Dosage: 10/20MG, QD
     Route: 048
  7. LOTREL [Suspect]
     Dosage: 5/10MG, QD
     Route: 048

REACTIONS (1)
  - CEREBROVASCULAR ACCIDENT [None]
